FAERS Safety Report 7554023-4 (Version None)
Quarter: 2011Q2

REPORT INFORMATION
  Report Type: 
  Country: None (occurrence: None)
  Receive Date: 20110617
  Receipt Date: 20110609
  Transmission Date: 20111010
  Serious: Yes (Hospitalization, Other)
  Sender: FDA-Public Use
  Company Number: US-AMGEN-KDC443295

PATIENT
  Age: 81 Year
  Sex: Female

DRUGS (12)
  1. ERGOCALCIFEROL [Concomitant]
  2. CALCIUM CARBONATE [Concomitant]
  3. OMEPRAZOLE [Concomitant]
  4. GUAIFENESIN [Concomitant]
  5. AMLODIPINE [Concomitant]
     Dosage: 10 MG, QD
     Dates: start: 20100726
  6. LIDODERM [Concomitant]
  7. DENOSUMAB [Suspect]
     Indication: OSTEOPOROSIS POSTMENOPAUSAL
     Dosage: 60 MG, Q6MO
     Route: 058
     Dates: start: 20071004
  8. OLMESARTAN MEDOXOMIL [Concomitant]
     Dosage: 20 MG, QD
     Dates: start: 20100726
  9. TRIMETHOPRIM + SULFAMETHOXAZOLE [Concomitant]
     Dosage: 500 MG, BID
     Dates: start: 20100726, end: 20100729
  10. ASCORBIC ACID [Concomitant]
  11. ALBUTEROL [Concomitant]
  12. IPRATROPIUM BROMIDE [Concomitant]

REACTIONS (2)
  - MYCOBACTERIUM AVIUM COMPLEX INFECTION [None]
  - PNEUMONIA STAPHYLOCOCCAL [None]
